FAERS Safety Report 4311315-X (Version None)
Quarter: 2004Q1

REPORT INFORMATION
  Report Type: 
  Country: None (occurrence: None)
  Receive Date: 20040302
  Receipt Date: 20030723
  Transmission Date: 20041129
  Serious: Yes (Life-Threatening)
  Sender: FDA-Public Use
  Company Number: BDI-005326

PATIENT
  Age: 51 Year
  Sex: Female

DRUGS (2)
  1. ISOVUE-300 [Suspect]
     Indication: ABDOMINAL PAIN
     Dosage: 100 ML ONCE IV
     Dates: start: 20030714, end: 20030714
  2. ISOVUE-300 [Suspect]
     Indication: COMPUTERISED TOMOGRAM
     Dosage: 100 ML ONCE IV
     Dates: start: 20030714, end: 20030714

REACTIONS (4)
  - COUGH [None]
  - DYSPNOEA [None]
  - EYE SWELLING [None]
  - SWELLING FACE [None]
